FAERS Safety Report 9331908 (Version 1)
Quarter: 2013Q2

REPORT INFORMATION
  Report Type: Spontaneous
  Country: GB (occurrence: None)
  Receive Date: 20130603
  Receipt Date: 20130603
  Transmission Date: 20140414
  Serious: Yes (Death)
  Sender: FDA-Public Use
  Company Number: GB-022888

PATIENT
  Age: 5 Year
  Sex: Male

DRUGS (5)
  1. BUSULFAN [Suspect]
     Indication: FAMILIAL HAEMOPHAGOCYTIC LYMPHOHISTIOCYTOSIS
  2. FLUDARABINE (FLUDARABINE) [Concomitant]
  3. PREDNISOLONE (PREDNISOLONE) [Concomitant]
  4. TACROLIMUS (TACROLIMUS) [Concomitant]
  5. ANTITHYMOCYTE GLOBULIN (ANTITHYMOCYTE GLOBULIN) [Concomitant]

REACTIONS (4)
  - Epstein-Barr virus infection [None]
  - Fungal infection [None]
  - Pneumocystis jirovecii infection [None]
  - Sepsis [None]
